FAERS Safety Report 19991182 (Version 2)
Quarter: 2021Q4

REPORT INFORMATION
  Report Type: Spontaneous
  Country: US (occurrence: US)
  Receive Date: 20211025
  Receipt Date: 20211028
  Transmission Date: 20220303
  Serious: Yes (Death, Life-Threatening, Hospitalization, Other)
  Sender: FDA-Public Use
  Company Number: US-DRREDDYS-LIT/USA/21/0142917

PATIENT
  Age: 24 Year
  Sex: Male

DRUGS (4)
  1. PROPOFOL [Suspect]
     Active Substance: PROPOFOL
     Indication: Sedation
     Dosage: 50-60 MICROGRAM/KG/MIN
  2. PROPOFOL [Suspect]
     Active Substance: PROPOFOL
     Dosage: 50-60 MCG/KG/MIN
  3. DEXAMETHASONE SODIUM PHOSPHATE [Suspect]
     Active Substance: DEXAMETHASONE SODIUM PHOSPHATE
     Indication: COVID-19 pneumonia
  4. REMDESIVIR [Concomitant]
     Active Substance: REMDESIVIR
     Indication: COVID-19 pneumonia

REACTIONS (7)
  - Hyperleukocytosis [Fatal]
  - Propofol infusion syndrome [Fatal]
  - Bradycardia [Fatal]
  - Metabolic acidosis [Fatal]
  - Cardiac arrest [Fatal]
  - Drug ineffective [Unknown]
  - Product use in unapproved indication [Unknown]
